FAERS Safety Report 4437250-4 (Version None)
Quarter: 2004Q3

REPORT INFORMATION
  Report Type: 
  Country: None (occurrence: None)
  Receive Date: 20040728
  Receipt Date: 20040329
  Transmission Date: 20050211
  Serious: No
  Sender: FDA-Public Use
  Company Number: WAES 0403USA02546

PATIENT
  Sex: Male

DRUGS (3)
  1. EMEND [Suspect]
     Dosage: 125 MG/1X/PO; SEE IMAGE
     Route: 048
  2. CISPLATIN [Concomitant]
  3. METHYLPREDNISOLONE [Concomitant]

REACTIONS (2)
  - MUSCLE CRAMP [None]
  - PAIN IN EXTREMITY [None]
